FAERS Safety Report 6355697-6 (Version None)
Quarter: 2009Q3

REPORT INFORMATION
  Report Type: 
  Country: None (occurrence: None)
  Receive Date: 20090910
  Receipt Date: 20090902
  Transmission Date: 20100115
  Serious: Yes (Other)
  Sender: FDA-Public Use
  Company Number: 2009SP019454

PATIENT
  Sex: Female

DRUGS (1)
  1. NOVIAL (DESOGESTREL/ETHINYLESTRADIOL) (DESOGESTREL/ETHINYLESTRADIOL) [Suspect]
     Indication: DRUG USE FOR UNKNOWN INDICATION
     Dosage: ;PO
     Route: 048

REACTIONS (2)
  - NEURITIS [None]
  - SPINAL CORD DISORDER [None]
